FAERS Safety Report 5218363-6 (Version None)
Quarter: 2007Q1

REPORT INFORMATION
  Report Type: 
  Country: None (occurrence: None)
  Receive Date: 20070124
  Receipt Date: 20070112
  Transmission Date: 20070707
  Serious: Yes (Hospitalization)
  Sender: FDA-Public Use
  Company Number: HR-PFIZER INC-2007004175

PATIENT
  Sex: Female
  Weight: 81 kg

DRUGS (2)
  1. NEURONTIN [Suspect]
     Route: 048
     Dates: start: 20060724, end: 20060807
  2. GLUCOPHAGE [Concomitant]
     Route: 048

REACTIONS (2)
  - BLOOD GLUCOSE INCREASED [None]
  - LIVER FUNCTION TEST ABNORMAL [None]
